FAERS Safety Report 9643749 (Version 1)
Quarter: 2013Q4

REPORT INFORMATION
  Report Type: Spontaneous
  Country: CO (occurrence: CO)
  Receive Date: 20131024
  Receipt Date: 20131024
  Transmission Date: 20140711
  Serious: Yes (Death, Other)
  Sender: FDA-Public Use
  Company Number: CO-PFIZER INC-2013304792

PATIENT
  Age: 67 Year
  Sex: Female

DRUGS (3)
  1. ALDACTONE [Suspect]
     Indication: HYPERTENSION
     Dosage: 25 MG, 1X/DAY
     Route: 048
     Dates: start: 201302
  2. LOSARTAN [Concomitant]
     Indication: HYPERTENSION
     Dosage: 100 MG, 1X/DAY
     Route: 048
  3. CLONIDINE [Concomitant]
     Indication: HYPERTENSION
     Dosage: UNK MG, UNK
     Route: 048

REACTIONS (2)
  - Atrioventricular block complete [Unknown]
  - Peripheral vascular disorder [Fatal]
